FAERS Safety Report 26055866 (Version 3)
Quarter: 2025Q4

REPORT INFORMATION
  Report Type: Spontaneous
  Country: JP (occurrence: JP)
  Receive Date: 20251118
  Receipt Date: 20251231
  Transmission Date: 20260118
  Serious: Yes (Life-Threatening, Hospitalization)
  Sender: ROCHE
  Company Number: JP-CHUGAI-2025036577

PATIENT
  Age: 71 Year
  Sex: Female
  Weight: 36 kg

DRUGS (3)
  1. VABYSMO [Suspect]
     Active Substance: FARICIMAB-SVOA
     Indication: Diabetic retinal oedema
     Dosage: 0.05 MILLILITER, LEFT EYE
  2. VABYSMO [Suspect]
     Active Substance: FARICIMAB-SVOA
     Dosage: 0.05 MILLILITER, RIGHT EYE
     Dates: start: 20230420, end: 20231025
  3. VABYSMO [Suspect]
     Active Substance: FARICIMAB-SVOA
     Dosage: 0.05 MILLILITER, LEFT EYE
     Dates: start: 20240725, end: 20250327

REACTIONS (1)
  - Brain stem haemorrhage [Unknown]

NARRATIVE: CASE EVENT DATE: 20251016
